FAERS Safety Report 4416778-7 (Version None)
Quarter: 2004Q3

REPORT INFORMATION
  Report Type: 
  Country: None (occurrence: None)
  Receive Date: 20040802
  Receipt Date: 20040719
  Transmission Date: 20050211
  Serious: Yes (Hospitalization)
  Sender: FDA-Public Use
  Company Number: 2002-FF-00535FF

PATIENT
  Age: 33 Year
  Sex: Male

DRUGS (4)
  1. VIRAMUNE [Suspect]
     Indication: HIV INFECTION
     Dosage: ONE UNIT DOSE TWICE DAILY (MG, 1 IN 12 HR) PO
     Route: 048
     Dates: start: 20040315
  2. COMBIVIR [Concomitant]
  3. REBETOL [Concomitant]
  4. INTRON A [Concomitant]

REACTIONS (2)
  - DEEP VEIN THROMBOSIS [None]
  - PULMONARY EMBOLISM [None]
